FAERS Safety Report 4363424-7 (Version None)
Quarter: 2004Q2

REPORT INFORMATION
  Report Type: 
  Country: None (occurrence: None)
  Receive Date: 20040524
  Receipt Date: 20040422
  Transmission Date: 20050107
  Serious: Yes (Other)
  Sender: FDA-Public Use
  Company Number: JP-GLAXOSMITHKLINE-B0330993A

PATIENT
  Age: 65 Year
  Sex: Female
  Weight: 45 kg

DRUGS (6)
  1. SEREVENT [Suspect]
     Indication: ASTHMA
     Dosage: 50MCG TWICE PER DAY
     Route: 055
     Dates: start: 20040322, end: 20040323
  2. ALMARL [Concomitant]
     Dosage: 10MG PER DAY
     Route: 048
     Dates: start: 20020101, end: 20040416
  3. AMLODIPINE [Concomitant]
     Dosage: 2.5MG PER DAY
     Route: 048
     Dates: start: 20020101, end: 20040416
  4. ASVERIN [Concomitant]
     Dosage: .39G PER DAY
     Route: 048
     Dates: start: 20040309, end: 20040415
  5. RESPLEN [Concomitant]
     Dosage: 30MG PER DAY
     Route: 048
     Dates: start: 20040309, end: 20040415
  6. MUCODYNE [Concomitant]
     Dosage: 249.99MG PER DAY
     Route: 048
     Dates: start: 20040309, end: 20040415

REACTIONS (1)
  - DEPRESSED LEVEL OF CONSCIOUSNESS [None]
